FAERS Safety Report 12957332 (Version 2)
Quarter: 2016Q4

REPORT INFORMATION
  Report Type: Spontaneous
  Country: PE (occurrence: PE)
  Receive Date: 20161118
  Receipt Date: 20161122
  Transmission Date: 20170207
  Serious: Yes (Hospitalization)
  Sender: FDA-Public Use
  Company Number: PE-BAUSCH-BL-2016-028107

PATIENT
  Age: 13 Year
  Sex: Male

DRUGS (2)
  1. METRONIDAZOLE. [Suspect]
     Active Substance: METRONIDAZOLE
     Indication: APPENDICITIS
     Route: 065
  2. CEFTRIAXONE SODIUM. [Suspect]
     Active Substance: CEFTRIAXONE SODIUM
     Indication: APPENDICITIS
     Route: 065

REACTIONS (5)
  - Respiratory distress [Recovering/Resolving]
  - Appendiceal abscess [Recovering/Resolving]
  - Pleural effusion [Recovering/Resolving]
  - Appendicitis [Recovering/Resolving]
  - Peritonitis [Recovering/Resolving]
